FAERS Safety Report 10120349 (Version 1)
Quarter: 2014Q2

REPORT INFORMATION
  Report Type: Spontaneous
  Country: US (occurrence: US)
  Receive Date: 20140425
  Receipt Date: 20140425
  Transmission Date: 20141212
  Serious: Yes (Other)
  Sender: FDA-Public Use
  Company Number: US-JNJFOC-20140414838

PATIENT
  Sex: Male
  Weight: 72.58 kg

DRUGS (10)
  1. XARELTO [Suspect]
     Indication: CEREBROVASCULAR ACCIDENT PROPHYLAXIS
     Route: 048
     Dates: start: 20130909
  2. XARELTO [Suspect]
     Indication: ATRIAL FIBRILLATION
     Route: 048
     Dates: start: 20130909
  3. METFORMIN [Suspect]
     Indication: DIABETES MELLITUS
     Route: 065
  4. METFORMIN [Suspect]
     Indication: DIABETES MELLITUS
     Dosage: 3 HALF TABLETS
     Route: 065
  5. METFORMIN [Suspect]
     Indication: DIABETES MELLITUS
     Dosage: DOUBLED THE DOSE
     Route: 065
  6. HYDROCHLOROTHIAZIDE [Concomitant]
     Indication: BLOOD PRESSURE ABNORMAL
     Route: 048
     Dates: end: 201402
  7. SIMVASTATIN [Concomitant]
     Indication: BLOOD CHOLESTEROL ABNORMAL
     Route: 065
     Dates: end: 20140120
  8. SIMVASTATIN [Concomitant]
     Indication: BLOOD CHOLESTEROL ABNORMAL
     Route: 065
     Dates: start: 20140120
  9. DIGOXIN [Concomitant]
     Indication: CARDIAC DISORDER
     Route: 048
  10. METOPROLOL TARTRATE [Concomitant]
     Indication: CARDIAC DISORDER
     Route: 048

REACTIONS (4)
  - Proteinuria [Unknown]
  - Hypotension [Unknown]
  - Diarrhoea [Recovering/Resolving]
  - Blood glucose fluctuation [Recovering/Resolving]
